FAERS Safety Report 20729218 (Version 2)
Quarter: 2022Q2

REPORT INFORMATION
  Report Type: Report from Study
  Country: BR (occurrence: BR)
  Receive Date: 20220420
  Receipt Date: 20220421
  Transmission Date: 20220721
  Serious: Yes (Life-Threatening, Other)
  Sender: FDA-Public Use
  Company Number: BR-NOVARTISPH-NVSC2022BR089490

PATIENT
  Sex: Female

DRUGS (1)
  1. TEGRETOL XR [Suspect]
     Active Substance: CARBAMAZEPINE
     Indication: Seizure
     Dosage: 200 MG
     Route: 065
     Dates: start: 200905

REACTIONS (14)
  - Feeling abnormal [Unknown]
  - Malignant neoplasm progression [Recovered/Resolved]
  - Brain neoplasm malignant [Unknown]
  - Seizure [Unknown]
  - Syncope [Recovering/Resolving]
  - Anticonvulsant drug level below therapeutic [Unknown]
  - Muscle rigidity [Unknown]
  - Malaise [Unknown]
  - Pain [Not Recovered/Not Resolved]
  - Oedema peripheral [Not Recovered/Not Resolved]
  - Myofascial pain syndrome [Not Recovered/Not Resolved]
  - Chest pain [Unknown]
  - Heart rate increased [Unknown]
  - Intentional product misuse [Unknown]

NARRATIVE: CASE EVENT DATE: 20090101
